FAERS Safety Report 12359714 (Version 1)
Quarter: 2016Q2

REPORT INFORMATION
  Report Type: Spontaneous
  Country: US (occurrence: None)
  Receive Date: 20160511
  Receipt Date: 20160511
  Transmission Date: 20160815
  Serious: No
  Sender: FDA-Public Use
  Company Number: None

PATIENT
  Age: 37 Year
  Sex: Female
  Weight: 72.58 kg

DRUGS (2)
  1. DARIFENACIN ACTAVIS [Suspect]
     Active Substance: DARIFENACIN
     Indication: URGE INCONTINENCE
     Route: 048
     Dates: start: 20160411, end: 20160427
  2. DARIFENACIN ACTAVIS [Suspect]
     Active Substance: DARIFENACIN
     Indication: NOCTURIA
     Route: 048
     Dates: start: 20160411, end: 20160427

REACTIONS (4)
  - Rash [None]
  - Peripheral swelling [None]
  - Back pain [None]
  - Arthralgia [None]
